FAERS Safety Report 16154182 (Version 1)
Quarter: 2019Q2

REPORT INFORMATION
  Report Type: Report from Study
  Country: US (occurrence: US)
  Receive Date: 20190403
  Receipt Date: 20190403
  Transmission Date: 20190711
  Serious: No
  Sender: FDA-Public Use
  Company Number: PHEH2019US014111

PATIENT
  Sex: Female

DRUGS (1)
  1. AFINITOR [Suspect]
     Active Substance: EVEROLIMUS
     Indication: PARTIAL SEIZURES
     Dosage: 13 MG, QD (ONCE DAILY)
     Route: 048
     Dates: start: 20180716, end: 20190322

REACTIONS (2)
  - Incorrect dose administered [Unknown]
  - Therapeutic response decreased [Unknown]
